FAERS Safety Report 13005678 (Version 1)
Quarter: 2016Q4

REPORT INFORMATION
  Report Type: Spontaneous
  Country: US (occurrence: US)
  Receive Date: 20161207
  Receipt Date: 20161207
  Transmission Date: 20170207
  Serious: Yes (Other)
  Sender: FDA-Public Use
  Company Number: US-SA-2016SA220084

PATIENT
  Age: 78 Year
  Sex: Male

DRUGS (2)
  1. LANTUS SOLOSTAR [Suspect]
     Active Substance: INSULIN GLARGINE
     Indication: TYPE 2 DIABETES MELLITUS
     Dosage: DOSE:14 UNIT(S)
     Route: 065
     Dates: start: 201405
  2. SOLOSTAR [Concomitant]
     Active Substance: DEVICE
     Dates: start: 201405

REACTIONS (5)
  - Visual impairment [Unknown]
  - Retinopathy [Unknown]
  - Condition aggravated [Unknown]
  - Macular degeneration [Unknown]
  - Eye disorder [Unknown]
